FAERS Safety Report 9372208 (Version 1)
Quarter: 2013Q2

REPORT INFORMATION
  Report Type: Report from Study
  Country: US (occurrence: US)
  Receive Date: 20130627
  Receipt Date: 20130627
  Transmission Date: 20140414
  Serious: Yes (Other)
  Sender: FDA-Public Use
  Company Number: US-MYLANLABS-2012S1017109

PATIENT
  Age: 54 Year
  Sex: Female

DRUGS (8)
  1. CLOZAPINE TABLETS [Suspect]
     Indication: SCHIZOPHRENIA, PARANOID TYPE
     Dates: start: 20120716, end: 201208
  2. CLOZAPINE TABLETS [Suspect]
     Indication: PSYCHOTIC DISORDER
     Dates: start: 20120716, end: 201208
  3. TRILAFON /00023401/ [Concomitant]
     Indication: PSYCHOTIC DISORDER
  4. WELLBUTRIN [Concomitant]
     Indication: DEPRESSION
     Route: 048
  5. COGENTIN [Concomitant]
  6. METOPROLOL [Concomitant]
     Indication: HYPERTENSION
     Route: 048
  7. NORVASC [Concomitant]
     Indication: HYPERTENSION
     Route: 048
  8. COLACE [Concomitant]
     Route: 048

REACTIONS (1)
  - Granulocytopenia [Not Recovered/Not Resolved]
